FAERS Safety Report 19605692 (Version 3)
Quarter: 2022Q3

REPORT INFORMATION
  Report Type: Other
  Country: KR (occurrence: None)
  Receive Date: 20210723
  Receipt Date: 20220814
  Transmission Date: 20221027
  Serious: Yes (Hospitalization)
  Sender: FDA-Public Use
  Company Number: KR-ROCHE-2872877

PATIENT
  Age: 70 Year
  Sex: Female
  Weight: 44.9 kg

DRUGS (8)
  1. ATEZOLIZUMAB [Suspect]
     Active Substance: ATEZOLIZUMAB
     Indication: Hepatocellular carcinoma
     Dosage: NEXT DOSES: 25/JUN/2021, 15/JUL/2021
     Route: 041
     Dates: start: 20210604
  2. BEVACIZUMAB [Suspect]
     Active Substance: BEVACIZUMAB
     Indication: Hepatocellular carcinoma
     Dosage: NEXT DOSES: 25/JUN/2021, 15/JUL/2021
     Route: 042
     Dates: start: 20210604
  3. URSODIOL [Concomitant]
     Active Substance: URSODIOL
     Indication: Hepatic cirrhosis
     Dates: start: 20201013
  4. MOSAPRIDE CITRATE [Concomitant]
     Active Substance: MOSAPRIDE CITRATE
     Indication: Dyspepsia
     Dates: start: 20201221
  5. PROPRANOLOL HYDROCHLORIDE [Concomitant]
     Active Substance: PROPRANOLOL HYDROCHLORIDE
     Indication: Prophylaxis
     Dates: start: 20210512
  6. RABIET [Concomitant]
     Indication: Gastritis
     Dates: start: 20210521
  7. ALDACTONE [Concomitant]
     Active Substance: SPIRONOLACTONE
     Indication: Prophylaxis
     Route: 048
     Dates: start: 20210628
  8. MUCOMYST [Concomitant]
     Active Substance: ACETYLCYSTEINE
     Dosage: 4ML/VIAL
     Dates: start: 20210713

REACTIONS (3)
  - Diarrhoea [Recovered/Resolved]
  - Constipation [Recovered/Resolved]
  - Vascular access site pain [Recovering/Resolving]

NARRATIVE: CASE EVENT DATE: 20210614
